FAERS Safety Report 9595178 (Version 2)
Quarter: 2013Q4

REPORT INFORMATION
  Report Type: Spontaneous
  Country: US (occurrence: US)
  Receive Date: 20131004
  Receipt Date: 20131004
  Transmission Date: 20140711
  Serious: No
  Sender: FDA-Public Use
  Company Number: US-PURDUE-USA-2012-0092729

PATIENT
  Age: 50 Year
  Sex: Male

DRUGS (3)
  1. BUTRANS [Suspect]
     Indication: ARTHRALGIA
     Dosage: 10 MCG/HR, 1/WEEK
     Route: 062
     Dates: start: 20120825
  2. BUTRANS [Suspect]
     Indication: OSTEOARTHRITIS
  3. TRAMADOL (SIMILAR TO NDA 21-745) [Concomitant]
     Indication: OSTEOARTHRITIS
     Dosage: 50 MG, TID
     Route: 048
     Dates: start: 2009, end: 2012

REACTIONS (3)
  - Application site burn [Recovering/Resolving]
  - Nausea [Not Recovered/Not Resolved]
  - Dizziness [Not Recovered/Not Resolved]
